FAERS Safety Report 16950876 (Version 1)
Quarter: 2019Q4

REPORT INFORMATION
  Report Type: Spontaneous
  Country: US (occurrence: US)
  Receive Date: 20191023
  Receipt Date: 20191023
  Transmission Date: 20200122
  Serious: Yes (Other)
  Sender: FDA-Public Use
  Company Number: US-PFIZER INC-2019141294

PATIENT
  Age: 49 Year
  Sex: Male
  Weight: 99.79 kg

DRUGS (2)
  1. VIAGRA [Suspect]
     Active Substance: SILDENAFIL CITRATE
     Dosage: UNK (HALF A TABLET OF THE 50MG TABLET AND USUALLY TAKES IT ONCE A WEEK)
     Route: 048
  2. VIAGRA [Suspect]
     Active Substance: SILDENAFIL CITRATE
     Indication: URINARY TRACT DISORDER
     Dosage: 50 MG, DAILY
     Route: 048
     Dates: start: 2012

REACTIONS (4)
  - Intentional product misuse [Unknown]
  - Product use in unapproved indication [Unknown]
  - Cerebrovascular accident [Unknown]
  - Off label use [Unknown]

NARRATIVE: CASE EVENT DATE: 2012
